FAERS Safety Report 4501410-4 (Version None)
Quarter: 2004Q4

REPORT INFORMATION
  Report Type: 
  Country: None (occurrence: None)
  Receive Date: 20041110
  Receipt Date: 20041027
  Transmission Date: 20050328
  Serious: Yes (Hospitalization)
  Sender: FDA-Public Use
  Company Number: 2004UW22567

PATIENT
  Age: 29 Year
  Sex: Male
  Weight: 77.1115 kg

DRUGS (13)
  1. PULMICORT RESPULES [Suspect]
     Indication: ASTHMA
     Dosage: 1 MG BID IH
     Route: 055
     Dates: start: 20040924, end: 20041026
  2. PULMICORT [Concomitant]
  3. ALBUTEROL [Concomitant]
  4. FORADIL [Concomitant]
  5. ACCOLATE [Concomitant]
  6. EFFEXOR XR [Concomitant]
  7. ADDERALL 10 [Concomitant]
  8. RHINOCORT [Concomitant]
  9. GLUCOSAMINE [Concomitant]
  10. BIAXIN XL [Concomitant]
  11. DOXYCYCLINE [Concomitant]
  12. CENTRUM [Concomitant]
  13. LIQUIBID-D [Concomitant]

REACTIONS (2)
  - ASTHMA [None]
  - CONDITION AGGRAVATED [None]
